FAERS Safety Report 9434188 (Version 1)
Quarter: 2013Q3

REPORT INFORMATION
  Report Type: Spontaneous
  Country: US (occurrence: None)
  Receive Date: 20130730
  Receipt Date: 20130730
  Transmission Date: 20140515
  Serious: Yes (Hospitalization)
  Sender: FDA-Public Use
  Company Number: None

PATIENT
  Sex: Male

DRUGS (15)
  1. RIBAVIRIN [Suspect]
     Indication: HEPATITIS C
     Dosage: 600 MG PO BID
     Route: 048
     Dates: start: 20130424, end: 20130620
  2. INCIVEK 375MG VERTEX [Suspect]
     Indication: HEPATITIS C
     Route: 048
     Dates: start: 20130424, end: 20130620
  3. CARDURA [Concomitant]
  4. PAXIL [Concomitant]
  5. HYDROCHLOROTHIAZIDE [Concomitant]
  6. LISINOPRIL [Concomitant]
  7. MULTIPLE VITAMIN [Concomitant]
  8. METOPROLOL [Concomitant]
  9. METFORMIN [Concomitant]
  10. ASPIRIN [Concomitant]
  11. ZANTAC [Concomitant]
  12. MUCINEX DM [Concomitant]
  13. GABAPENTIN [Concomitant]
  14. SEROQUEL XR [Concomitant]
  15. PEGASYS [Concomitant]

REACTIONS (2)
  - Anaemia [None]
  - Anorectal discomfort [None]
